FAERS Safety Report 4816977-6 (Version None)
Quarter: 2005Q3

REPORT INFORMATION
  Report Type: 
  Country: None (occurrence: None)
  Receive Date: 20050929
  Receipt Date: 20050616
  Transmission Date: 20060218
  Serious: No
  Sender: FDA-Public Use
  Company Number: 05P-163-0303382

PATIENT
  Age: 87 Year
  Sex: Female
  Weight: 50.8029 kg

DRUGS (11)
  1. HUMIRA [Suspect]
     Indication: RHEUMATOID ARTHRITIS
     Dosage: 40 MG, 1 IN 2 WK, SUBCUTANEOUS
     Route: 058
     Dates: start: 20050301
  2. PREDNISONE [Concomitant]
  3. ATORVASTATIN CALCIUM [Concomitant]
  4. TOPOROL [Concomitant]
  5. PANTOPRAZOLE [Concomitant]
  6. HYROXYCHLOROQUINE PHOSPHATE [Concomitant]
  7. TRIAMPTERINE [Concomitant]
  8. FOLTX [Concomitant]
  9. ASCORBIC ACID [Concomitant]
  10. CENTRUM [Concomitant]
  11. LEXAPRO [Concomitant]

REACTIONS (1)
  - RED BLOOD CELL SEDIMENTATION RATE DECREASED [None]
